FAERS Safety Report 14831573 (Version 2)
Quarter: 2018Q2

REPORT INFORMATION
  Report Type: Report from Study
  Country: DE (occurrence: DE)
  Receive Date: 20180501
  Receipt Date: 20180508
  Transmission Date: 20180711
  Serious: Yes (Other)
  Sender: FDA-Public Use
  Company Number: DE-ROCHE-2114656

PATIENT
  Age: 65 Year
  Sex: Male
  Weight: 72 kg

DRUGS (8)
  1. OBINUTUZUMAB. [Suspect]
     Active Substance: OBINUTUZUMAB
     Indication: CHRONIC LYMPHOCYTIC LEUKAEMIA
     Dosage: CYCLE 1: D1: 100 MG, D1(OR 2): 900MG, D8 AND 15: 1000MG; CYCLE 2-6: D1: 1000MG MAINTENANCE: CYCLES 1
     Route: 042
     Dates: start: 20160204
  2. IBUPROFEN. [Concomitant]
     Active Substance: IBUPROFEN
     Route: 048
  3. BENDAMUSTINE [Suspect]
     Active Substance: BENDAMUSTINE
     Indication: CHRONIC LYMPHOCYTIC LEUKAEMIA
     Dosage: CYCLES 1-2, DAY 1 AND 2: 70 MG/M2?LAST DOSE PRIOR TO SAE ONSET: 05/JAN/2016
     Route: 042
     Dates: start: 20151202
  4. NOVALGIN (METAMIZOLE SODIUM) [Concomitant]
     Active Substance: METAMIZOLE SODIUM
     Route: 048
  5. VENETOCLAX. [Suspect]
     Active Substance: VENETOCLAX
     Indication: CHRONIC LYMPHOCYTIC LEUKAEMIA
     Dosage: CYCLE 2: D1-7: 20MG, D8-14: 50MG, D15-21: 100MG, D22-28: 200MG; CYCLE 3-6: D1-28: 400 MG MAINTENANCE
     Route: 048
     Dates: start: 20160304
  6. PANTOPRAZOL [Concomitant]
     Active Substance: PANTOPRAZOLE SODIUM
     Route: 048
  7. METAMIZOLE [Concomitant]
     Active Substance: METAMIZOLE
  8. CLEXANE [Concomitant]
     Active Substance: ENOXAPARIN SODIUM
     Route: 058

REACTIONS (1)
  - Bowen^s disease [Recovered/Resolved]

NARRATIVE: CASE EVENT DATE: 20170817
